FAERS Safety Report 8175117-9 (Version None)
Quarter: 2012Q1

REPORT INFORMATION
  Report Type: 
  Country: None (occurrence: None)
  Receive Date: 20120229
  Receipt Date: 20120223
  Transmission Date: 20120608
  Serious: Yes (Hospitalization, Other)
  Sender: FDA-Public Use
  Company Number: PHEH2012US003006

PATIENT
  Sex: Male

DRUGS (11)
  1. OMEPRAZOLE [Concomitant]
  2. METHADONE HCL [Concomitant]
     Dosage: 20 MG, TID
     Route: 048
  3. FLUOXETINE [Concomitant]
     Dosage: 20 MG, DAILY
  4. ACETAMINOPHEN AND OXYCODONE HCL [Concomitant]
     Dosage: 325/5 MG
     Route: 048
  5. FOLIC ACID [Concomitant]
     Dosage: 1 MG, DAILY
     Route: 048
  6. FOSINOPRIL SODIUM [Concomitant]
     Dosage: 20 MG, DAILY
     Route: 048
  7. ZOFRAN [Concomitant]
  8. HYDROXYUREA [Concomitant]
     Dosage: 500 MG, BID
     Route: 048
  9. EXJADE [Suspect]
     Indication: IRON OVERLOAD
     Dosage: 1000 MG, DAILY
     Route: 048
     Dates: start: 20101012
  10. EXJADE [Suspect]
     Dosage: 1000 MG, DAILY
     Route: 048
  11. LASIX [Concomitant]
     Dosage: 40 MG, DAILY

REACTIONS (24)
  - URINE OUTPUT DECREASED [None]
  - BLOOD PRESSURE DIASTOLIC DECREASED [None]
  - BLOOD BILIRUBIN INCREASED [None]
  - OXYGEN SATURATION DECREASED [None]
  - RETICULOCYTE COUNT INCREASED [None]
  - BLOOD POTASSIUM DECREASED [None]
  - FATIGUE [None]
  - DEHYDRATION [None]
  - CHEST PAIN [None]
  - SYSTOLIC DYSFUNCTION [None]
  - BLOOD GLUCOSE INCREASED [None]
  - PNEUMONIA [None]
  - SICKLE CELL ANAEMIA WITH CRISIS [None]
  - HAEMOGLOBIN DECREASED [None]
  - DYSPNOEA [None]
  - CHILLS [None]
  - BACK PAIN [None]
  - MITRAL VALVE STENOSIS [None]
  - BRAIN NATRIURETIC PEPTIDE INCREASED [None]
  - PAIN [None]
  - PRODUCTIVE COUGH [None]
  - ARTHRALGIA [None]
  - URINARY TRACT INFECTION [None]
  - BLOOD LACTATE DEHYDROGENASE INCREASED [None]
